FAERS Safety Report 19228075 (Version 1)
Quarter: 2021Q2

REPORT INFORMATION
  Report Type: Spontaneous
  Country: FR (occurrence: FR)
  Receive Date: 20210507
  Receipt Date: 20210507
  Transmission Date: 20210717
  Serious: Yes (Death)
  Sender: FDA-Public Use
  Company Number: FR-ROCHE-2823569

PATIENT
  Age: 79 Year
  Sex: Male
  Weight: 72 kg

DRUGS (6)
  1. CRESTOR [Concomitant]
     Active Substance: ROSUVASTATIN CALCIUM
  2. ZELBORAF [Suspect]
     Active Substance: VEMURAFENIB
     Indication: LUNG ADENOCARCINOMA
     Route: 048
     Dates: start: 20210326, end: 20210405
  3. PERINDOPRIL [Concomitant]
     Active Substance: PERINDOPRIL
  4. KARDEGIC [Concomitant]
     Active Substance: ASPIRIN DL-LYSINE
  5. ISOPTINE [Concomitant]
     Active Substance: VERAPAMIL HYDROCHLORIDE
  6. COTELLIC [Suspect]
     Active Substance: COBIMETINIB
     Indication: LUNG ADENOCARCINOMA
     Route: 048
     Dates: start: 20210326, end: 20210405

REACTIONS (1)
  - Drug reaction with eosinophilia and systemic symptoms [Fatal]

NARRATIVE: CASE EVENT DATE: 20210328
